FAERS Safety Report 6631444-5 (Version None)
Quarter: 2010Q1

REPORT INFORMATION
  Report Type: 
  Country: None (occurrence: None)
  Receive Date: 20100312
  Receipt Date: 20100304
  Transmission Date: 20100710
  Serious: Yes (Death)
  Sender: FDA-Public Use
  Company Number: US-CUBIST-2010S1000108

PATIENT
  Age: 90 Year
  Sex: Male
  Weight: 90.7 kg

DRUGS (4)
  1. CUBICIN [Suspect]
     Indication: STAPHYLOCOCCAL BACTERAEMIA
     Route: 042
     Dates: start: 20091120
  2. CUBICIN [Suspect]
     Indication: ENDOCARDITIS
     Route: 042
     Dates: start: 20091120
  3. VANCOMYCIN [Suspect]
     Indication: STAPHYLOCOCCAL BACTERAEMIA
  4. VANCOMYCIN [Suspect]
     Indication: ENDOCARDITIS

REACTIONS (2)
  - ENDOCARDITIS [None]
  - STAPHYLOCOCCAL BACTERAEMIA [None]
